FAERS Safety Report 5872422-3 (Version None)
Quarter: 2008Q3

REPORT INFORMATION
  Report Type: 
  Country: None (occurrence: None)
  Receive Date: 20080905
  Receipt Date: 20080826
  Transmission Date: 20090109
  Serious: Yes (Other)
  Sender: FDA-Public Use
  Company Number: PHEH2008US07606

PATIENT
  Sex: Female

DRUGS (8)
  1. AREDIA [Suspect]
  2. ZOMETA [Suspect]
  3. OXYCONTIN [Concomitant]
     Indication: PAIN
  4. VICODIN [Concomitant]
  5. RYTHMOL [Concomitant]
     Dosage: 50 MG, 2QD
  6. IRON [Concomitant]
     Dosage: 2 QD
  7. VIOXX [Concomitant]
     Dosage: 2 QD
  8. HYDROCODONE BITARTRATE [Concomitant]
     Indication: PAIN

REACTIONS (8)
  - ARTHRALGIA [None]
  - BACK PAIN [None]
  - FALL [None]
  - INTERVERTEBRAL DISC OPERATION [None]
  - INTERVERTEBRAL DISC PROTRUSION [None]
  - JOINT INJURY [None]
  - MUSCULAR WEAKNESS [None]
  - RADICULAR PAIN [None]
